FAERS Safety Report 15633224 (Version 4)
Quarter: 2018Q4

REPORT INFORMATION
  Report Type: Report from Study
  Country: AT (occurrence: AT)
  Receive Date: 20181119
  Receipt Date: 20181207
  Transmission Date: 20190205
  Serious: Yes (Hospitalization)
  Sender: FDA-Public Use
  Company Number: AT-ROCHE-2214143

PATIENT
  Age: 42 Year
  Sex: Female
  Weight: 61 kg

DRUGS (16)
  1. ANTIFLAT [Concomitant]
     Indication: FLATULENCE
     Route: 065
     Dates: start: 20180228
  2. KALIORAL (AUSTRIA) [Concomitant]
     Route: 065
     Dates: start: 20181111, end: 20181111
  3. ESCITALOPRAM [Concomitant]
     Active Substance: ESCITALOPRAM OXALATE
     Indication: DEPRESSION
     Route: 065
     Dates: start: 20180416
  4. MEXALEN [Concomitant]
     Active Substance: ACETAMINOPHEN
     Indication: BONE PAIN
     Route: 065
     Dates: start: 20180316
  5. ANTIBIOPHILUS [Concomitant]
     Indication: DIARRHOEA
     Route: 065
     Dates: start: 20181001
  6. PANTOLOC [Concomitant]
     Active Substance: PANTOPRAZOLE SODIUM
     Indication: PROPHYLAXIS
     Route: 065
     Dates: start: 20181109
  7. URBASON [Concomitant]
     Active Substance: METHYLPREDNISOLONE
     Indication: IMMUNOSUPPRESSION
     Route: 048
     Dates: start: 20181113, end: 20181115
  8. FRAGMIN [Concomitant]
     Active Substance: DALTEPARIN SODIUM
     Indication: EMBOLISM
     Route: 065
     Dates: start: 20181109, end: 20181109
  9. BEVACIZUMAB. [Suspect]
     Active Substance: BEVACIZUMAB
     Indication: OVARIAN CANCER
     Dosage: ON 10/SEP/2018, SHE RECEIVED HER MOST RECENT DOSE (855 MG) OF A BEVACIZUMAB PRIOR TO AE AND SAE ONSE
     Route: 042
     Dates: start: 20180405
  10. PACLITAXEL. [Suspect]
     Active Substance: PACLITAXEL
     Indication: OVARIAN CANCER
     Dosage: ON 24/JUL/2018, SHE RECEIVED HER MOST RECENT DOSE (284 MG) OF A PACLITAXEL PRIOR TO AE AND SAE ONSET
     Route: 042
     Dates: start: 20180315
  11. CARBOPLATIN. [Suspect]
     Active Substance: CARBOPLATIN
     Indication: OVARIAN CANCER
     Dosage: TARGET AREA UNDER THE CURVE (AUC) OF 6 (MG/ML*MIN)?ON 24/JUL/2018, SHE RECEIVED HER MOST RECENT DOSE
     Route: 042
     Dates: start: 20180315
  12. URBASON [Concomitant]
     Active Substance: METHYLPREDNISOLONE
     Route: 048
     Dates: start: 20181116
  13. LIXIANA [Concomitant]
     Active Substance: EDOXABAN TOSYLATE
     Indication: EMBOLISM
     Route: 065
     Dates: start: 20181115
  14. CORTISON [Concomitant]
     Active Substance: CORTISONE ACETATE
     Indication: OEDEMA PERIPHERAL
  15. ATEZOLIZUMAB. [Suspect]
     Active Substance: ATEZOLIZUMAB
     Indication: OVARIAN CANCER
     Dosage: ON 22/OCT/2018, SHE RECEIVED HER MOST RECENT DOSE OF A BLINDED ATEZOLIZUMAB PRIOR TO AE AND SAE ONSE
     Route: 042
     Dates: start: 20180315
  16. EUTHYROX [Concomitant]
     Active Substance: LEVOTHYROXINE SODIUM
     Indication: HYPOTHYROIDISM
     Route: 065
     Dates: start: 20180301

REACTIONS (1)
  - Cardiomyopathy [Not Recovered/Not Resolved]

NARRATIVE: CASE EVENT DATE: 20181109
